FAERS Safety Report 10271984 (Version 3)
Quarter: 2014Q3

REPORT INFORMATION
  Report Type: Spontaneous
  Country: US (occurrence: US)
  Receive Date: 20140702
  Receipt Date: 20140717
  Transmission Date: 20150326
  Serious: Yes (Other)
  Sender: FDA-Public Use
  Company Number: PHEH2014US012920

PATIENT
  Sex: Male

DRUGS (5)
  1. EXELON PATCH [Suspect]
     Active Substance: RIVASTIGMINE
     Dosage: 13.3 MG, UNK
     Route: 062
  2. EXELON PATCH [Suspect]
     Active Substance: RIVASTIGMINE
     Dosage: UNK UKN, UNK
  3. CALCIUM + VITAMIN D3 [Concomitant]
     Dosage: UNK UKN, UNK
  4. DEXILANT [Concomitant]
     Active Substance: DEXLANSOPRAZOLE
     Dosage: UNK UKN, UNK
  5. VITAMIN B12 [Concomitant]
     Active Substance: CYANOCOBALAMIN
     Dosage: UNK UKN, UNK

REACTIONS (13)
  - Weight decreased [Unknown]
  - Gastric ulcer [Unknown]
  - Rib fracture [Unknown]
  - Cardiac failure congestive [Unknown]
  - Fall [Unknown]
  - Gastric cancer [Unknown]
  - Injury [Unknown]
  - Balance disorder [Unknown]
  - Asthenia [Unknown]
  - Malaise [Unknown]
  - Pelvic fracture [Unknown]
  - General physical health deterioration [Unknown]
  - Gait disturbance [Unknown]
